FAERS Safety Report 6625315-8 (Version None)
Quarter: 2010Q1

REPORT INFORMATION
  Report Type: 
  Country: None (occurrence: None)
  Receive Date: 20100310
  Receipt Date: 20090818
  Transmission Date: 20100710
  Serious: No
  Sender: FDA-Public Use
  Company Number: US-BIOGENIDEC-2009BI026273

PATIENT
  Age: 52 Year
  Sex: Female

DRUGS (1)
  1. AVONEX [Suspect]
     Indication: MULTIPLE SCLEROSIS
     Route: 030
     Dates: start: 19980601

REACTIONS (5)
  - EYELID INJURY [None]
  - FALL [None]
  - GAIT DISTURBANCE [None]
  - ROAD TRAFFIC ACCIDENT [None]
  - UPPER LIMB FRACTURE [None]
